FAERS Safety Report 15550469 (Version 1)
Quarter: 2018Q4

REPORT INFORMATION
  Report Type: Spontaneous
  Country: US (occurrence: US)
  Receive Date: 20181019
  Receipt Date: 20181019
  Transmission Date: 20190205
  Serious: No
  Sender: FDA-Public Use
  Company Number: None

PATIENT
  Age: 68 Year
  Sex: Female

DRUGS (1)
  1. IMATAINIB 400MG TAB (X30) [Suspect]
     Active Substance: IMATINIB MESYLATE
     Route: 048
     Dates: start: 201808

REACTIONS (4)
  - Solar lentigo [None]
  - Nausea [None]
  - Eructation [None]
  - Hunger [None]

NARRATIVE: CASE EVENT DATE: 20181010
